FAERS Safety Report 8315766-8 (Version None)
Quarter: 2012Q2

REPORT INFORMATION
  Report Type: 
  Country: None (occurrence: None)
  Receive Date: 20120426
  Receipt Date: 20120417
  Transmission Date: 20120825
  Serious: Yes (Death, Other)
  Sender: FDA-Public Use
  Company Number: FI-ELI_LILLY_AND_COMPANY-FI201204005543

PATIENT
  Sex: Male

DRUGS (6)
  1. CAD [Concomitant]
     Indication: SUPPLEMENTATION THERAPY
  2. FORTEO [Suspect]
     Indication: OSTEOPOROSIS
     Dosage: 20 UG, QD
     Dates: start: 20111215
  3. PULMICORT [Concomitant]
     Indication: CHRONIC OBSTRUCTIVE PULMONARY DISEASE
  4. CORTISONE ACETATE [Concomitant]
     Indication: MUSCULOSKELETAL PAIN
     Dosage: 20 MG, QD
  5. WARFARIN SODIUM [Concomitant]
     Indication: BLOOD DISORDER
  6. PANACOD [Concomitant]
     Indication: PAIN

REACTIONS (3)
  - MYOCARDIAL INFARCTION [None]
  - DEATH [None]
  - LOSS OF CONSCIOUSNESS [None]
